FAERS Safety Report 20622946 (Version 2)
Quarter: 2022Q1

REPORT INFORMATION
  Report Type: Spontaneous
  Country: GB (occurrence: GB)
  Receive Date: 20220322
  Receipt Date: 20220331
  Transmission Date: 20220424
  Serious: Yes (Hospitalization)
  Sender: FDA-Public Use
  Company Number: GB-MYLANLABS-2022M1020728

PATIENT
  Sex: Male

DRUGS (1)
  1. ACAMPROSATE [Suspect]
     Active Substance: ACAMPROSATE
     Indication: Product used for unknown indication
     Dosage: UNK

REACTIONS (2)
  - Neoplasm [Unknown]
  - Off label use [Unknown]
